FAERS Safety Report 19140719 (Version 1)
Quarter: 2021Q2

REPORT INFORMATION
  Report Type: Spontaneous
  Country: DE (occurrence: DE)
  Receive Date: 20210415
  Receipt Date: 20210415
  Transmission Date: 20210717
  Serious: Yes (Hospitalization)
  Sender: FDA-Public Use
  Company Number: DE-TEVA-2021-DE-1900407

PATIENT
  Age: 76 Year
  Sex: Female

DRUGS (22)
  1. METAMIZOL [Concomitant]
     Active Substance: METAMIZOLE SODIUM
     Dosage: 500 MG, NEEDS
  2. LECICARBON E CO2 LAXANS [Concomitant]
     Dosage: NEED
     Route: 054
  3. QUETIAPIN [Concomitant]
     Active Substance: QUETIAPINE
     Dosage: 25 MG, AS NEEDED
  4. ASPIRIN PROTECT 100 [Concomitant]
     Active Substance: ASPIRIN
     Dosage: 100 MILLIGRAM DAILY;  0?1?0?0
  5. AMLODIPIN [Concomitant]
     Active Substance: AMLODIPINE BESYLATE
     Dosage: 5 MG, 0.5?0?0.5?0
  6. RAMIPRIL. [Concomitant]
     Active Substance: RAMIPRIL
     Dosage: 5 MG, 1?0?0?1, 10MG
  7. LACTULOSE. [Suspect]
     Active Substance: LACTULOSE
     Dosage: 10 ML, 1?0?1?0, SOLUTION, 20ML
  8. QUETIAPIN [Suspect]
     Active Substance: QUETIAPINE
     Dosage: 50 MILLIGRAM DAILY;  0?0?1?0
  9. EBRANTIL 60 MG [Concomitant]
     Dosage: 60 MG, 1?1?1?0, 180MG
  10. MOVICOL [Concomitant]
     Active Substance: POLYETHYLENE GLYCOL 3350\POTASSIUM CHLORIDE\SODIUM BICARBONATE\SODIUM CHLORIDE
     Dosage: REQUIREMENT, BAG / GRANULATE
  11. ATORVASTATIN [Concomitant]
     Active Substance: ATORVASTATIN
     Dosage: 20 MILLIGRAM DAILY; 0?0?1?0
  12. QUETIAPIN [Suspect]
     Active Substance: QUETIAPINE
     Dosage: 25 MG, 1?1?0?0, 50MG
  13. MEMANTIN [Suspect]
     Active Substance: MEMANTINE
     Dosage: 20 MILLIGRAM DAILY; 1?0?0?0
  14. TAVOR [Concomitant]
     Dosage: 1 MG, AS NEEDED
  15. KALINOR [Concomitant]
     Dosage: 1 DOSAGE FORMS DAILY; 1?0?0?0
  16. DECODERM TRI [Concomitant]
     Active Substance: FLUPREDNIDENE ACETATE\MICONAZOLE NITRATE
     Dosage: 1?0?1?0, 2DF
     Route: 061
  17. MAGNESIUM [Concomitant]
     Active Substance: MAGNESIUM
     Dosage: 1?0?1?0, 2DF
  18. LACTULOSE. [Concomitant]
     Active Substance: LACTULOSE
     Dosage: 20 ML, REQUIREMENT, SOLUTION
  19. RISPERIDON [Suspect]
     Active Substance: RISPERIDONE
     Dosage: .5 MILLIGRAM DAILY; 1 MG, 0?0?0?0.5
  20. MOXONIDIN [Concomitant]
     Active Substance: MOXONIDINE
     Dosage: .3 MILLIGRAM DAILY; 1?0?0?0
  21. OMEPRAZOL [Concomitant]
     Active Substance: OMEPRAZOLE
     Dosage: 20 MILLIGRAM DAILY; 20 MG, 1?0?0?0
  22. LEVOTHYROXINE SODIUM. [Concomitant]
     Active Substance: LEVOTHYROXINE SODIUM
     Dosage: 50 MICROGRAM DAILY; 100 UG, 0.5?0?0?0, 50MCG

REACTIONS (5)
  - General physical health deterioration [Unknown]
  - Dehydration [Unknown]
  - Disturbance in attention [Unknown]
  - Somnolence [Unknown]
  - Asthenia [Unknown]
